FAERS Safety Report 24566941 (Version 1)
Quarter: 2024Q4

REPORT INFORMATION
  Report Type: Spontaneous
  Country: PL (occurrence: PL)
  Receive Date: 20241030
  Receipt Date: 20241030
  Transmission Date: 20250114
  Serious: Yes (Other)
  Sender: TEVA
  Company Number: None

PATIENT
  Age: 50 Year
  Sex: Male

DRUGS (3)
  1. LEVOFLOXACIN [Suspect]
     Active Substance: LEVOFLOXACIN
     Indication: Product used for unknown indication
     Dosage: LEVOXA
     Route: 048
     Dates: start: 20210622, end: 20210628
  2. ESCIN [Suspect]
     Active Substance: ESCIN
     Indication: Product used for unknown indication
     Route: 048
     Dates: start: 20210622, end: 20210628
  3. INDOMETHACIN [Suspect]
     Active Substance: INDOMETHACIN
     Indication: Product used for unknown indication
     Dosage: 1 TABLET AT NIGHT;
     Route: 048
     Dates: start: 20210622, end: 20210628

REACTIONS (3)
  - Lip oedema [Recovering/Resolving]
  - Paraesthesia [Recovering/Resolving]
  - Blood pressure fluctuation [Recovering/Resolving]

NARRATIVE: CASE EVENT DATE: 20210626
